FAERS Safety Report 8313096-1 (Version None)
Quarter: 2012Q2

REPORT INFORMATION
  Report Type: 
  Country: None (occurrence: None)
  Receive Date: 20120426
  Receipt Date: 20120416
  Transmission Date: 20120825
  Serious: Yes (Other)
  Sender: FDA-Public Use
  Company Number: FR-TEVA-334653ISR

PATIENT
  Age: 52 Year
  Sex: Male

DRUGS (1)
  1. PROPRANOLOL [Suspect]
     Indication: TACHYCARDIA
     Dosage: 40 MILLIGRAM;
     Route: 048
     Dates: start: 20100101, end: 20101001

REACTIONS (6)
  - PSYCHOTIC DISORDER [None]
  - ERECTILE DYSFUNCTION [None]
  - GAIT DISTURBANCE [None]
  - HALLUCINATION, VISUAL [None]
  - ALOPECIA [None]
  - TINNITUS [None]
